FAERS Safety Report 20687497 (Version 2)
Quarter: 2022Q2

REPORT INFORMATION
  Report Type: Spontaneous
  Country: CA (occurrence: CA)
  Receive Date: 20220408
  Receipt Date: 20220513
  Transmission Date: 20220721
  Serious: Yes (Other)
  Sender: FDA-Public Use
  Company Number: CA-CELLTRION INC.-2022CA004153

PATIENT

DRUGS (11)
  1. INFLECTRA [Suspect]
     Active Substance: INFLIXIMAB-DYYB
     Indication: Crohn^s disease
     Dosage: 335 MG, Q 0, 2, 6 WEEKS THEN EVERY 8 WEEKS
     Route: 042
     Dates: start: 20220311
  2. INFLECTRA [Suspect]
     Active Substance: INFLIXIMAB-DYYB
     Dosage: 5 MG/KG Q 0, 2, 6 WEEKS THEN EVERY 8 WEEKS
     Route: 042
     Dates: start: 20220324
  3. CALCIUM\VITAMIN D [Concomitant]
     Active Substance: CALCIUM\VITAMIN D
     Dosage: 1 DF
     Route: 065
  4. CENTRUM ACTIVE [Concomitant]
     Dosage: 1 DF
     Route: 065
  5. DOMPERIDONE [Concomitant]
     Active Substance: DOMPERIDONE
     Dosage: 1 DF
     Route: 065
  6. IMURAN [Concomitant]
     Active Substance: AZATHIOPRINE
     Dosage: 1 DF
     Route: 065
  7. METFORMIN [Concomitant]
     Active Substance: METFORMIN HYDROCHLORIDE
     Dosage: 1 DF
     Route: 065
  8. OZEMPIC [Concomitant]
     Active Substance: SEMAGLUTIDE
     Dosage: 1 DF
     Route: 065
  9. PANTOPRAZOLE [Concomitant]
     Active Substance: PANTOPRAZOLE
     Dosage: 1 DF
     Route: 065
  10. PERINDOPRIL [Concomitant]
     Active Substance: PERINDOPRIL
     Dosage: UNK
  11. PREDNISONE [Concomitant]
     Active Substance: PREDNISONE
     Dosage: 1 DF
     Route: 065

REACTIONS (2)
  - Weight increased [Not Recovered/Not Resolved]
  - Incorrect dose administered [Unknown]

NARRATIVE: CASE EVENT DATE: 20220311
